FAERS Safety Report 10086236 (Version 1)
Quarter: 2014Q2

REPORT INFORMATION
  Report Type: Spontaneous
  Country: US (occurrence: None)
  Receive Date: 20140417
  Receipt Date: 20140417
  Transmission Date: 20141212
  Serious: No
  Sender: FDA-Public Use
  Company Number: None

PATIENT
  Age: 60 Year
  Sex: Female
  Weight: 93.44 kg

DRUGS (1)
  1. BIAXIN [Suspect]
     Indication: BRONCHITIS
     Dosage: 2 PILLS (500) MG 2 X DAILY
     Route: 048

REACTIONS (6)
  - Headache [None]
  - Eye pain [None]
  - Gingival pain [None]
  - Back pain [None]
  - Dizziness [None]
  - Asthenia [None]
